FAERS Safety Report 7044228-3 (Version None)
Quarter: 2010Q4

REPORT INFORMATION
  Report Type: 
  Country: None (occurrence: None)
  Receive Date: 20101014
  Receipt Date: 20101004
  Transmission Date: 20110411
  Serious: Yes (Hospitalization)
  Sender: FDA-Public Use
  Company Number: US-BIOGENIDEC-2010BI034131

PATIENT
  Age: 26 Year
  Sex: Female
  Weight: 78 kg

DRUGS (1)
  1. AVONEX [Suspect]
     Indication: MULTIPLE SCLEROSIS
     Route: 030
     Dates: start: 20040123, end: 20071024

REACTIONS (3)
  - ABASIA [None]
  - DRUG INEFFECTIVE [None]
  - FALL [None]
